FAERS Safety Report 7784469-0 (Version None)
Quarter: 2011Q3

REPORT INFORMATION
  Report Type: 
  Country: None (occurrence: None)
  Receive Date: 20110928
  Receipt Date: 20110922
  Transmission Date: 20111222
  Serious: Yes (Hospitalization, Congenital Anomaly, Other)
  Sender: FDA-Public Use
  Company Number: GXKR2011DE02895

PATIENT
  Sex: Female
  Weight: 4.27 kg

DRUGS (1)
  1. PAROXETINE HCL [Suspect]
     Dosage: MOTHER DOSE: 20 MG/DAY
     Route: 064

REACTIONS (4)
  - CONVULSION NEONATAL [None]
  - LARGE FOR DATES BABY [None]
  - NEONATAL RESPIRATORY FAILURE [None]
  - MATERNAL EXPOSURE DURING PREGNANCY [None]
